FAERS Safety Report 17686205 (Version 4)
Quarter: 2020Q3

REPORT INFORMATION
  Report Type: Report from Study
  Country: ES (occurrence: ES)
  Receive Date: 20200420
  Receipt Date: 20200915
  Transmission Date: 20201102
  Serious: Yes (Death)
  Sender: FDA-Public Use
  Company Number: ES-EXELIXIS-XL18420027697

PATIENT
  Age: 77 Year
  Sex: Male

DRUGS (1)
  1. CABOZANTINIB [Suspect]
     Active Substance: CABOZANTINIB
     Indication: RENAL CELL CARCINOMA
     Dosage: 60 MG, DAILY
     Route: 048
     Dates: start: 20200117, end: 20200323

REACTIONS (2)
  - Back pain [Recovering/Resolving]
  - Pulmonary embolism [Fatal]

NARRATIVE: CASE EVENT DATE: 20200211
